FAERS Safety Report 25751627 (Version 2)
Quarter: 2025Q3

REPORT INFORMATION
  Report Type: Spontaneous
  Country: US (occurrence: US)
  Receive Date: 20250902
  Receipt Date: 20250905
  Transmission Date: 20251021
  Serious: Yes (Hospitalization, Other)
  Sender: PFIZER
  Company Number: US-MLMSERVICE-20250815-PI615874-00270-1

PATIENT
  Age: 59 Year
  Sex: Male

DRUGS (9)
  1. SOLU-MEDROL [Suspect]
     Active Substance: METHYLPREDNISOLONE SODIUM SUCCINATE
     Indication: Myocarditis
     Dosage: DAYS 6-8
  2. SOLU-MEDROL [Suspect]
     Active Substance: METHYLPREDNISOLONE SODIUM SUCCINATE
     Indication: Myositis
     Dosage: FROM DAY 9
  3. SOLU-MEDROL [Suspect]
     Active Substance: METHYLPREDNISOLONE SODIUM SUCCINATE
     Indication: Myasthenia gravis
  4. PREDNISONE [Suspect]
     Active Substance: PREDNISONE
     Indication: Myocarditis
  5. PREDNISONE [Suspect]
     Active Substance: PREDNISONE
     Dosage: 80 MG, DAILY (TAPERED TO)
  6. ABATACEPT [Concomitant]
     Active Substance: ABATACEPT
     Indication: Myocarditis
  7. RUXOLITINIB [Concomitant]
     Active Substance: RUXOLITINIB
     Indication: Myocarditis
     Dosage: STARTED ON DAY 11
  8. PYRIDOSTIGMINE [Concomitant]
     Active Substance: PYRIDOSTIGMINE
     Indication: Myasthenia gravis
     Dosage: 60 MG, 2X/DAY
  9. HUMAN IMMUNOGLOBULIN G [Concomitant]
     Active Substance: HUMAN IMMUNOGLOBULIN G
     Route: 042

REACTIONS (2)
  - Myasthenia gravis [Recovering/Resolving]
  - Condition aggravated [Recovering/Resolving]
